FAERS Safety Report 18771121 (Version 2)
Quarter: 2021Q1

REPORT INFORMATION
  Report Type: Report from Study
  Country: US (occurrence: US)
  Receive Date: 20210121
  Receipt Date: 20210224
  Transmission Date: 20210419
  Serious: No
  Sender: FDA-Public Use
  Company Number: NVSC2021US008440

PATIENT
  Age: 71 Year
  Sex: Male

DRUGS (1)
  1. ENTRESTO [Suspect]
     Active Substance: SACUBITRIL\VALSARTAN
     Indication: CARDIAC FAILURE
     Dosage: 1 DF, BID (49.51 MG)
     Route: 048
     Dates: start: 20201228

REACTIONS (8)
  - Asthenia [Unknown]
  - Blood sodium increased [Unknown]
  - Blood glucose increased [Unknown]
  - Fall [Unknown]
  - Dyspnoea [Recovering/Resolving]
  - Fluid retention [Unknown]
  - Back pain [Unknown]
  - Neck pain [Unknown]

NARRATIVE: CASE EVENT DATE: 20210113
